FAERS Safety Report 14424967 (Version 7)
Quarter: 2018Q2

REPORT INFORMATION
  Report Type: Report from Study
  Country: US (occurrence: US)
  Receive Date: 20180123
  Receipt Date: 20180613
  Transmission Date: 20180711
  Serious: Yes (Other)
  Sender: FDA-Public Use
  Company Number: US-PFIZER INC-2018027345

PATIENT
  Age: 63 Year
  Sex: Female

DRUGS (2)
  1. IBRANCE [Suspect]
     Active Substance: PALBOCICLIB
     Indication: BREAST CANCER
     Dosage: 125 MG, CYCLIC (DAILY/3 WEEKS ON, 1 WEEK OFF)
     Route: 048
     Dates: start: 20171218
  2. IBRANCE [Suspect]
     Active Substance: PALBOCICLIB
     Dosage: 125 MG, DAILY
     Route: 048
     Dates: start: 20171218

REACTIONS (20)
  - Dyspnoea exertional [Unknown]
  - Hypersensitivity [Unknown]
  - Nasopharyngitis [Unknown]
  - Blood potassium increased [Unknown]
  - Haemoglobin decreased [Unknown]
  - Haematocrit decreased [Unknown]
  - Joint stiffness [Unknown]
  - Nasal congestion [Not Recovered/Not Resolved]
  - Back pain [Unknown]
  - Pain [Unknown]
  - Bone marrow failure [Recovering/Resolving]
  - Glaucoma [Recovering/Resolving]
  - White blood cell count decreased [Unknown]
  - Musculoskeletal chest pain [Unknown]
  - Neuropathy peripheral [Not Recovered/Not Resolved]
  - Bronchitis [Unknown]
  - Epistaxis [Unknown]
  - Arthralgia [Not Recovered/Not Resolved]
  - Musculoskeletal stiffness [Unknown]
  - Hepatic enzyme increased [Unknown]
